FAERS Safety Report 7395801-4 (Version None)
Quarter: 2011Q2

REPORT INFORMATION
  Report Type: 
  Country: None (occurrence: None)
  Receive Date: 20110405
  Receipt Date: 20110330
  Transmission Date: 20111010
  Serious: Yes (Death)
  Sender: FDA-Public Use
  Company Number: TH-BAYER-2011-027182

PATIENT
  Age: 50 Year
  Sex: Female

DRUGS (1)
  1. AVELOX [Suspect]
     Route: 042

REACTIONS (1)
  - DEATH [None]
